FAERS Safety Report 6814552-5 (Version None)
Quarter: 2010Q2

REPORT INFORMATION
  Report Type: 
  Country: None (occurrence: None)
  Receive Date: 20100629
  Receipt Date: 20100616
  Transmission Date: 20101027
  Serious: No
  Sender: FDA-Public Use
  Company Number: WAES 1006USA03142

PATIENT
  Age: 58 Year
  Sex: Male

DRUGS (1)
  1. INJ IVOMEC PLUS UNK [Suspect]
     Indication: DRUG ADMINISTRATION ERROR
     Dosage: SC
     Route: 058
     Dates: start: 20100614, end: 20100614

REACTIONS (6)
  - ACCIDENTAL EXPOSURE [None]
  - CONTUSION [None]
  - INJURY ASSOCIATED WITH DEVICE [None]
  - PAIN OF SKIN [None]
  - SKIN IRRITATION [None]
  - SWELLING [None]
